FAERS Safety Report 8457155-1 (Version None)
Quarter: 2012Q2

REPORT INFORMATION
  Report Type: 
  Country: None (occurrence: None)
  Receive Date: 20120621
  Receipt Date: 20120608
  Transmission Date: 20120825
  Serious: No
  Sender: FDA-Public Use
  Company Number: US-BAYER-2012-057967

PATIENT
  Age: 33 Year
  Sex: Male
  Weight: 77 kg

DRUGS (2)
  1. ALEVE (CAPLET) [Suspect]
     Indication: PAIN
     Dosage: 1 DF, ONCE
     Route: 048
     Dates: start: 20120601, end: 20120608
  2. ASPIRIN [Suspect]
     Indication: PAIN
     Route: 048

REACTIONS (2)
  - SOMNOLENCE [None]
  - ASTHENIA [None]
